FAERS Safety Report 5044988-7 (Version None)
Quarter: 2006Q2

REPORT INFORMATION
  Report Type: 
  Country: None (occurrence: None)
  Receive Date: 20060601
  Receipt Date: 20060316
  Transmission Date: 20061013
  Serious: No
  Sender: FDA-Public Use
  Company Number: US200603004905

PATIENT
  Age: 58 Year
  Sex: Female

DRUGS (3)
  1. CYMBALTA [Suspect]
     Indication: DRUG USE FOR UNKNOWN INDICATION
     Dosage: 30 MG, ORAL
     Route: 048
  2. CELEBREX [Concomitant]
  3. SERZONE [Concomitant]

REACTIONS (4)
  - CHEST PAIN [None]
  - DRUG INTERACTION [None]
  - HEART RATE INCREASED [None]
  - RENAL PAIN [None]
